FAERS Safety Report 22628448 (Version 1)
Quarter: 2023Q2

REPORT INFORMATION
  Report Type: Spontaneous
  Country: US (occurrence: None)
  Receive Date: 20230621
  Receipt Date: 20230621
  Transmission Date: 20230721
  Serious: Yes (Death)
  Sender: FDA-Public Use
  Company Number: None

PATIENT
  Age: 64 Year
  Sex: Male
  Weight: 69.3 kg

DRUGS (4)
  1. CARVYKTI [Suspect]
     Active Substance: CILTACABTAGENE AUTOLEUCEL
     Dosage: OTHER FREQUENCY : ONCE;?
     Route: 042
     Dates: start: 20230411, end: 20230411
  2. TOCILIZUMAB [Concomitant]
     Active Substance: TOCILIZUMAB
     Dates: start: 20230412, end: 20230412
  3. TOCILIZUMAB [Concomitant]
     Active Substance: TOCILIZUMAB
     Dates: start: 20230415, end: 20230415
  4. TOCILIZUMAB [Concomitant]
     Active Substance: TOCILIZUMAB
     Dates: start: 20230416, end: 20230416

REACTIONS (13)
  - Lymphocyte adoptive therapy [None]
  - Cytokine release syndrome [None]
  - Immune effector cell-associated neurotoxicity syndrome [None]
  - Acute kidney injury [None]
  - Haemofiltration [None]
  - Enterococcal infection [None]
  - Streptococcal bacteraemia [None]
  - Systemic candida [None]
  - Toxicity to various agents [None]
  - Neurotoxicity [None]
  - Hypotension [None]
  - Tachycardia [None]
  - Melaena [None]

NARRATIVE: CASE EVENT DATE: 20230509
